FAERS Safety Report 18037531 (Version 1)
Quarter: 2020Q3

REPORT INFORMATION
  Report Type: Spontaneous
  Country: IT (occurrence: IT)
  Receive Date: 20200717
  Receipt Date: 20200717
  Transmission Date: 20201103
  Serious: Yes (Other)
  Sender: FDA-Public Use
  Company Number: IT-TEVA-2020-IT-1800939

PATIENT
  Age: 72 Year
  Sex: Female

DRUGS (8)
  1. DEXAMETHASONE. [Concomitant]
     Active Substance: DEXAMETHASONE
  2. CHLORPHENAMINE [Concomitant]
     Active Substance: CHLORPHENIRAMINE MALEATE
  3. ACETYLSALICYLIC ACID [Concomitant]
     Active Substance: ASPIRIN
  4. TRASTUZUMAB. [Suspect]
     Active Substance: TRASTUZUMAB
     Indication: BREAST NEOPLASM
     Dosage: 106 MILLIGRAM
     Dates: start: 20190411, end: 20190613
  5. GRANISETRON [Concomitant]
     Active Substance: GRANISETRON
  6. LORATADINE. [Concomitant]
     Active Substance: LORATADINE
  7. PACLITAXEL. [Suspect]
     Active Substance: PACLITAXEL
     Indication: BREAST NEOPLASM
     Dosage: 120 MILLIGRAM
     Dates: start: 20190411, end: 20190613
  8. RANITIDINE. [Concomitant]
     Active Substance: RANITIDINE

REACTIONS (1)
  - Ventricular extrasystoles [Unknown]

NARRATIVE: CASE EVENT DATE: 20190620
